FAERS Safety Report 4843916-4 (Version None)
Quarter: 2005Q4

REPORT INFORMATION
  Report Type: 
  Country: None (occurrence: None)
  Receive Date: 20051202
  Receipt Date: 20050408
  Transmission Date: 20060501
  Serious: No
  Sender: FDA-Public Use
  Company Number: US-GLAXOSMITHKLINE-A0553373A

PATIENT
  Age: 72 Year
  Sex: Female

DRUGS (3)
  1. AUGMENTIN [Suspect]
     Indication: DIVERTICULITIS
     Dosage: 500MG UNKNOWN
     Route: 048
     Dates: start: 20050328, end: 20050330
  2. PRILOSEC [Concomitant]
  3. COUMADIN [Concomitant]

REACTIONS (2)
  - DIARRHOEA [None]
  - FLUSHING [None]
